FAERS Safety Report 6215724-3 (Version None)
Quarter: 2009Q2

REPORT INFORMATION
  Report Type: 
  Country: None (occurrence: None)
  Receive Date: 20090605
  Receipt Date: 20090602
  Transmission Date: 20091009
  Serious: Yes (Other)
  Sender: FDA-Public Use
  Company Number: DE-SANOFI-SYNTHELABO-A01200905469

PATIENT
  Sex: Male

DRUGS (4)
  1. MARCUMAR [Concomitant]
     Indication: DRUG USE FOR UNKNOWN INDICATION
     Dosage: UNK
     Route: 065
     Dates: start: 19970101
  2. CLOPIDOGREL [Suspect]
     Indication: CORONARY ARTERY THROMBOSIS
     Route: 048
     Dates: start: 20030201, end: 20090430
  3. CLOPIDOGREL [Suspect]
     Route: 048
     Dates: start: 20090501, end: 20090501
  4. CLOPIDOGREL [Suspect]
     Route: 048
     Dates: start: 20090501

REACTIONS (2)
  - DEAFNESS [None]
  - UNDERDOSE [None]
